FAERS Safety Report 8820635 (Version 2)
Quarter: 2012Q4

REPORT INFORMATION
  Report Type: 
  Country: HR (occurrence: HR)
  Receive Date: 20121002
  Receipt Date: 20121119
  Transmission Date: 20130627
  Serious: Yes (Hospitalization, Other)
  Sender: FDA-Public Use
  Company Number: HR-JNJFOC-20120910496

PATIENT
  Age: 3 None
  Sex: Male

DRUGS (15)
  1. RISPOLEPT [Suspect]
     Indication: SCHIZOPHRENIA
     Dosage: 0,0,1+1/2
     Route: 048
     Dates: start: 200210, end: 200601
  2. RISPOLEPT [Suspect]
     Indication: SCHIZOPHRENIA
     Dosage: 1,0,1
     Route: 048
     Dates: start: 199911, end: 200210
  3. RISPOLEPT [Suspect]
     Indication: SCHIZOPHRENIA
     Dosage: 1,1,0
     Route: 048
     Dates: start: 200601, end: 200901
  4. RISPOLEPT [Suspect]
     Indication: ACUTE PSYCHOSIS
     Dosage: 1,1,0
     Route: 048
     Dates: start: 200601, end: 200901
  5. RISPOLEPT [Suspect]
     Indication: ACUTE PSYCHOSIS
     Dosage: 1,0,1
     Route: 048
     Dates: start: 199911, end: 200210
  6. RISPOLEPT [Suspect]
     Indication: ACUTE PSYCHOSIS
     Dosage: 0,0,1+1/2
     Route: 048
     Dates: start: 200210, end: 200601
  7. NORMABEL [Suspect]
     Indication: ACUTE PSYCHOSIS
     Route: 065
     Dates: start: 199911
  8. DIAZEPAM [Suspect]
     Indication: ACUTE PSYCHOSIS
     Dosage: 0,0,1
     Route: 065
  9. NORMABEL [Suspect]
     Indication: ACUTE PSYCHOSIS
     Dosage: 1/2,0,1
     Route: 065
     Dates: start: 200601
  10. PRAZINE [Suspect]
     Indication: ACUTE PSYCHOSIS
     Route: 065
  11. PRAZINE [Suspect]
     Indication: ACUTE PSYCHOSIS
     Dosage: 1,1/2,1
     Route: 065
     Dates: start: 199911
  12. PRAZINE [Suspect]
     Indication: ACUTE PSYCHOSIS
     Dosage: 0,0,1
     Route: 065
     Dates: start: 200601
  13. FLUPHENAZINE [Suspect]
     Indication: SCHIZOPHRENIA
     Route: 065
  14. RISSET [Suspect]
     Indication: SCHIZOPHRENIA
     Dosage: 1,1,1
     Route: 065
  15. RISSET [Suspect]
     Indication: ACUTE PSYCHOSIS
     Dosage: 1,1,1
     Route: 065

REACTIONS (3)
  - Psychotic disorder [Recovered/Resolved]
  - Alcohol abuse [Recovered/Resolved]
  - Treatment noncompliance [Recovered/Resolved]
